FAERS Safety Report 13004387 (Version 3)
Quarter: 2017Q1

REPORT INFORMATION
  Report Type: Spontaneous
  Country: PL (occurrence: PL)
  Receive Date: 20161207
  Receipt Date: 20170214
  Transmission Date: 20170428
  Serious: Yes (Other)
  Sender: FDA-Public Use
  Company Number: PL-ROCHE-1863179

PATIENT
  Age: 70 Year
  Sex: Female

DRUGS (4)
  1. CLEMASTIN [Concomitant]
     Active Substance: CLEMASTINE
     Dosage: DOSE: 4 PLUS 2MG, FREQUENCY:2X
     Route: 042
     Dates: start: 20161201, end: 20161201
  2. PARACETAMOL [Concomitant]
     Active Substance: ACETAMINOPHEN
     Dosage: FREQUENCY: 1X
     Route: 048
     Dates: start: 20161201, end: 20161201
  3. DEXAVEN [Concomitant]
     Active Substance: DEXAMETHASONE
     Dosage: DOSE 8 PLUS 4MG, FREQUENCY: 2X
     Route: 042
     Dates: start: 20161201, end: 20161201
  4. GAZYVARO [Suspect]
     Active Substance: OBINUTUZUMAB
     Indication: CHRONIC LYMPHOCYTIC LEUKAEMIA
     Dosage: FREQUENCY ACCORDING TO REGISTRATION
     Route: 042
     Dates: start: 20161201

REACTIONS (4)
  - Chills [Recovered/Resolved]
  - Lung disorder [Recovered/Resolved]
  - Dyspnoea [Recovered/Resolved]
  - Blood pressure decreased [Recovered/Resolved]

NARRATIVE: CASE EVENT DATE: 20161201
